FAERS Safety Report 14949039 (Version 1)
Quarter: 2018Q2

REPORT INFORMATION
  Report Type: Spontaneous
  Country: AR (occurrence: AR)
  Receive Date: 20180529
  Receipt Date: 20180529
  Transmission Date: 20180711
  Serious: Yes (Other)
  Sender: FDA-Public Use
  Company Number: AR-PFIZER INC-2018214374

PATIENT
  Age: 68 Year
  Sex: Female

DRUGS (1)
  1. IBRANCE [Suspect]
     Active Substance: PALBOCICLIB
     Indication: BREAST CANCER METASTATIC
     Dosage: 125 MG, CYCLIC (3X1 SCHEDULE)
     Dates: start: 201702, end: 20180520

REACTIONS (7)
  - Haematocrit decreased [Recovering/Resolving]
  - Tumour marker increased [Recovering/Resolving]
  - Red blood cell count decreased [Recovering/Resolving]
  - Hypochromasia [Recovering/Resolving]
  - White blood cell count decreased [Recovering/Resolving]
  - Decreased immune responsiveness [Recovering/Resolving]
  - Anisocytosis [Recovering/Resolving]

NARRATIVE: CASE EVENT DATE: 2017
